FAERS Safety Report 18163471 (Version 1)
Quarter: 2020Q3

REPORT INFORMATION
  Report Type: Report from Study
  Country: None (occurrence: US)
  Receive Date: 20200818
  Receipt Date: 20200818
  Transmission Date: 20201103
  Serious: Yes (Death)
  Sender: FDA-Public Use
  Company Number: US-ABBVIE-20K-163-3529062-00

PATIENT
  Sex: Female
  Weight: 14.21 kg

DRUGS (1)
  1. CREON [Suspect]
     Active Substance: PANCRELIPASE AMYLASE\PANCRELIPASE LIPASE\PANCRELIPASE PROTEASE
     Indication: CYSTIC FIBROSIS
     Dosage: 3 CAPSULE BEFORE MEALS AND SNACK
     Route: 048
     Dates: start: 20150910

REACTIONS (1)
  - Cystic fibrosis [Fatal]
